FAERS Safety Report 9449179 (Version 3)
Quarter: 2013Q4

REPORT INFORMATION
  Report Type: Spontaneous
  Country: US (occurrence: US)
  Receive Date: 20130808
  Receipt Date: 20131014
  Transmission Date: 20140711
  Serious: Yes (Hospitalization)
  Sender: FDA-Public Use
  Company Number: US-GLAXOSMITHKLINE-A0734637A

PATIENT
  Age: 54 Year
  Sex: Male
  Weight: 76.4 kg

DRUGS (4)
  1. AVANDIA [Suspect]
     Indication: TYPE 2 DIABETES MELLITUS
     Dosage: 8MG PER DAY
     Route: 048
     Dates: start: 200404, end: 200705
  2. GLUCOPHAGE [Concomitant]
     Dates: start: 200010, end: 20081118
  3. GLUCOTROL [Concomitant]
     Dates: start: 20040829, end: 20050307
  4. LANTUS [Concomitant]
     Dates: start: 200506, end: 20081115

REACTIONS (5)
  - Myocardial ischaemia [Not Recovered/Not Resolved]
  - Angina unstable [Unknown]
  - Arteriosclerosis [Unknown]
  - Coronary artery disease [Unknown]
  - Atrial fibrillation [Unknown]
